FAERS Safety Report 10784743 (Version 2)
Quarter: 2015Q1

REPORT INFORMATION
  Report Type: Spontaneous
  Country: CO (occurrence: None)
  Receive Date: 20150209
  Receipt Date: 20150224
  Transmission Date: 20150721
  Serious: Yes (Other)
  Sender: FDA-Public Use
  Company Number: 2015-10617

PATIENT
  Age: 79 Year
  Sex: Female

DRUGS (1)
  1. EYLEA [Suspect]
     Active Substance: AFLIBERCEPT
     Indication: DIABETIC RETINAL OEDEMA
     Dosage: 1 DF DOSAGE FORM, MONTHLY, SECOND INJECTION
     Dates: start: 20150115

REACTIONS (2)
  - Eye pain [None]
  - Eye operation [None]

NARRATIVE: CASE EVENT DATE: 20150115
